FAERS Safety Report 8507762-2 (Version None)
Quarter: 2012Q3

REPORT INFORMATION
  Report Type: 
  Country: None (occurrence: None)
  Receive Date: 20120709
  Receipt Date: 20120709
  Transmission Date: 20120928
  Serious: Yes (Disabling)
  Sender: FDA-Public Use
  Company Number: None

PATIENT
  Sex: Male

DRUGS (1)
  1. ZYTIGA [Suspect]
     Indication: PROSTATE CANCER
     Dosage: 1,000 MG ONCE A DAY ORAL
     Route: 048
     Dates: start: 20120301

REACTIONS (2)
  - MONOPLEGIA [None]
  - HYPOAESTHESIA [None]
